FAERS Safety Report 8208775-0 (Version None)
Quarter: 2012Q1

REPORT INFORMATION
  Report Type: 
  Country: None (occurrence: None)
  Receive Date: 20120314
  Receipt Date: 20120229
  Transmission Date: 20120608
  Serious: Yes (Hospitalization, Other)
  Sender: FDA-Public Use
  Company Number: GB-ROCHE-1044753

PATIENT
  Sex: Female

DRUGS (21)
  1. PREDNISONE TAB [Concomitant]
     Route: 048
  2. HYDROXYCHLOROQUINE SULFATE [Concomitant]
     Route: 048
  3. MORPHINE [Concomitant]
     Route: 048
  4. ALENDRONIC ACID [Concomitant]
     Route: 048
  5. GLIPIZIDE [Concomitant]
     Indication: DIABETES MELLITUS
     Dosage: DOE REDUCED
  6. MABTHERA [Suspect]
     Indication: RHEUMATOID ARTHRITIS
     Dates: start: 20101019
  7. AZATHIOPRINE [Concomitant]
     Route: 048
  8. LISINOPRIL [Concomitant]
     Route: 048
  9. AMITRIPTYLINE HCL [Concomitant]
     Route: 048
  10. RANITIDINE [Concomitant]
     Route: 048
  11. PEPTAC [Concomitant]
     Dosage: 10-20 ML
     Route: 048
  12. METFORMIN [Concomitant]
     Indication: DIABETES MELLITUS
  13. COLECALCIFEROL [Concomitant]
  14. LEFLUNOMIDE [Concomitant]
     Route: 048
  15. MORPHINE [Concomitant]
     Route: 048
  16. GABAPENTIN [Concomitant]
     Route: 048
  17. CALCIUM CARBONATE [Concomitant]
     Route: 048
  18. ACETAMINOPHEN [Concomitant]
     Route: 048
  19. FLUTICASONE PROPIONATE/SALMETEROL [Concomitant]
     Dosage: ONE PUFF, INHALER
  20. BISOPROLOL FUMARATE [Concomitant]
     Dosage: INHALER
  21. FLUOXETINE HCL [Concomitant]
     Route: 048

REACTIONS (6)
  - RENAL FAILURE ACUTE [None]
  - LOWER RESPIRATORY TRACT INFECTION [None]
  - DIARRHOEA [None]
  - CHEST PAIN [None]
  - STRESS CARDIOMYOPATHY [None]
  - TOXICITY TO VARIOUS AGENTS [None]
